FAERS Safety Report 20968404 (Version 5)
Quarter: 2022Q3

REPORT INFORMATION
  Report Type: Report from Study
  Country: US (occurrence: US)
  Receive Date: 20220616
  Receipt Date: 20220909
  Transmission Date: 20221026
  Serious: No
  Sender: FDA-Public Use
  Company Number: US-NOVARTISTESTPH-NVSC2022US138003

PATIENT
  Sex: Male

DRUGS (4)
  1. ENTRESTO [Suspect]
     Active Substance: SACUBITRIL\VALSARTAN
     Indication: Product used for unknown indication
     Dosage: 1 DOSAGE FORM, BID (24/26 MG)
     Route: 048
  2. ENTRESTO [Suspect]
     Active Substance: SACUBITRIL\VALSARTAN
     Dosage: 1 DOSAGE FORM, BID (24/26 MG)
     Route: 048
  3. ENTRESTO [Suspect]
     Active Substance: SACUBITRIL\VALSARTAN
     Dosage: 1 DOSAGE FORM, BID
     Route: 048
  4. CONCERTA [Suspect]
     Active Substance: METHYLPHENIDATE HYDROCHLORIDE
     Indication: Product used for unknown indication
     Dosage: UNK
     Route: 065

REACTIONS (14)
  - Lethargy [Unknown]
  - Dehydration [Unknown]
  - COVID-19 [Unknown]
  - Vision blurred [Unknown]
  - Decreased appetite [Unknown]
  - Eating disorder [Unknown]
  - Throat clearing [Unknown]
  - Weight decreased [Unknown]
  - Illness [Unknown]
  - Vertigo [Unknown]
  - Fatigue [Unknown]
  - Nausea [Unknown]
  - Blood pressure decreased [Unknown]
  - Dizziness [Unknown]
